FAERS Safety Report 7184945-8 (Version None)
Quarter: 2010Q4

REPORT INFORMATION
  Report Type: 
  Country: None (occurrence: None)
  Receive Date: 20101222
  Receipt Date: 20101214
  Transmission Date: 20110411
  Serious: Yes (Hospitalization)
  Sender: FDA-Public Use
  Company Number: DE-ABBOTT-10P-062-0664073-00

PATIENT
  Sex: Female

DRUGS (1)
  1. HUMIRA [Suspect]
     Indication: PSORIASIS
     Dates: start: 20090202, end: 20100924

REACTIONS (6)
  - ARTHROPATHY [None]
  - MOBILITY DECREASED [None]
  - PAIN [None]
  - PSORIASIS [None]
  - SKIN DISORDER [None]
  - SWELLING [None]
